FAERS Safety Report 5758403-9 (Version None)
Quarter: 2008Q2

REPORT INFORMATION
  Report Type: 
  Country: None (occurrence: None)
  Receive Date: 20080530
  Receipt Date: 20080520
  Transmission Date: 20081010
  Serious: Yes (Other)
  Sender: FDA-Public Use
  Company Number: 2008AP000276

PATIENT
  Age: 30 Year
  Sex: Male

DRUGS (10)
  1. PAROXETINE HCL [Suspect]
     Dosage: SEE IMAGE
     Route: 048
     Dates: start: 20030717, end: 20040827
  2. PAROXETINE HCL [Suspect]
     Dosage: SEE IMAGE
     Route: 048
     Dates: start: 20001120
  3. PAROXETINE HCL [Suspect]
     Dosage: SEE IMAGE
     Route: 048
     Dates: start: 20010601
  4. PAROXETINE HCL [Suspect]
     Dosage: SEE IMAGE
     Route: 048
     Dates: start: 20020117
  5. PAROXETINE HCL [Suspect]
     Dosage: SEE IMAGE
     Route: 048
     Dates: start: 20020221
  6. PAROXETINE HCL [Suspect]
     Dosage: SEE IMAGE
     Route: 048
     Dates: start: 20031020
  7. PAROXETINE HCL [Suspect]
     Dosage: SEE IMAGE
     Route: 048
     Dates: start: 20040827
  8. DOSULEPIN (DOSULEPIN) [Concomitant]
  9. FLUOXETINE HCL [Concomitant]
  10. REBOXETINE (REBOXETINE) [Concomitant]

REACTIONS (34)
  - ABDOMINAL DISTENSION [None]
  - ABNORMAL DREAMS [None]
  - ACNE [None]
  - AGGRESSION [None]
  - AGITATION [None]
  - ANXIETY [None]
  - COGNITIVE DISORDER [None]
  - COORDINATION ABNORMAL [None]
  - DIARRHOEA [None]
  - DISTURBANCE IN ATTENTION [None]
  - DIZZINESS [None]
  - DRUG DEPENDENCE [None]
  - DRUG WITHDRAWAL SYNDROME [None]
  - EYE PAIN [None]
  - FLIGHT OF IDEAS [None]
  - FUNGAL INFECTION [None]
  - GAIT DISTURBANCE [None]
  - HEADACHE [None]
  - HOSTILITY [None]
  - HYPERHIDROSIS [None]
  - HYPERSOMNIA [None]
  - IMPULSIVE BEHAVIOUR [None]
  - INSOMNIA [None]
  - INTENTIONAL SELF-INJURY [None]
  - IRRITABILITY [None]
  - MIGRAINE [None]
  - MOOD ALTERED [None]
  - PANIC ATTACK [None]
  - PANIC REACTION [None]
  - PARAESTHESIA [None]
  - PARANOIA [None]
  - SUICIDAL IDEATION [None]
  - THINKING ABNORMAL [None]
  - WEIGHT DECREASED [None]
